FAERS Safety Report 5323523-X (Version None)
Quarter: 2007Q2

REPORT INFORMATION
  Report Type: 
  Country: None (occurrence: None)
  Receive Date: 20070510
  Receipt Date: 20070510
  Transmission Date: 20071010
  Serious: Yes (Death, Hospitalization)
  Sender: FDA-Public Use
  Company Number: None

PATIENT
  Sex: Female
  Weight: 59.9 kg

DRUGS (6)
  1. CYCLOPHOSPHAMIDE [Suspect]
     Dosage: 2052 MG
  2. DAUNORUBICIN [Suspect]
     Dosage: 411 MG
  3. L-ASPARAGINASE [Suspect]
     Dosage: 51300 MG
  4. VINCRISTINE SULFATE [Suspect]
     Dosage: 6 MG
  5. G-CSF (FILGRASTIM, AMGEN) [Suspect]
     Dosage: 4500 MG
  6. ALLOPURINOL [Suspect]
     Dosage: 4800 MG

REACTIONS (5)
  - BRAIN HERNIATION [None]
  - BRAIN OEDEMA [None]
  - HYPOTENSION [None]
  - SUBARACHNOID HAEMORRHAGE [None]
  - TACHYCARDIA [None]
